FAERS Safety Report 6959471-9 (Version None)
Quarter: 2010Q3

REPORT INFORMATION
  Report Type: 
  Country: None (occurrence: None)
  Receive Date: 20100827
  Receipt Date: 20100818
  Transmission Date: 20110219
  Serious: Yes (Death)
  Sender: FDA-Public Use
  Company Number: 2010105202

PATIENT
  Age: 66 Year
  Sex: Male
  Weight: 90 kg

DRUGS (1)
  1. FRAGMIN [Suspect]
     Dosage: 18000 IU, 1 X/DAY, SUBCUTANEOUS
     Route: 058
     Dates: start: 20091020, end: 20100728

REACTIONS (1)
  - DEATH [None]
